FAERS Safety Report 6279043-1 (Version None)
Quarter: 2009Q3

REPORT INFORMATION
  Report Type: 
  Country: None (occurrence: None)
  Receive Date: 20090723
  Receipt Date: 20090714
  Transmission Date: 20100115
  Serious: Yes (Other)
  Sender: FDA-Public Use
  Company Number: US-CELGENEUS-163-21880-09061055

PATIENT
  Sex: Female

DRUGS (3)
  1. REVLIMID [Suspect]
     Indication: MYELODYSPLASTIC SYNDROME
     Route: 048
     Dates: start: 20090216, end: 20090101
  2. REVLIMID [Suspect]
     Route: 048
     Dates: start: 20090101
  3. RECLAST [Concomitant]
     Indication: DRUG USE FOR UNKNOWN INDICATION
     Route: 050

REACTIONS (7)
  - CARDIAC FAILURE CONGESTIVE [None]
  - DIARRHOEA [None]
  - OEDEMA PERIPHERAL [None]
  - RASH GENERALISED [None]
  - RASH MORBILLIFORM [None]
  - STOMATITIS [None]
  - URTICARIA [None]
